FAERS Safety Report 5926224-X (Version None)
Quarter: 2008Q4

REPORT INFORMATION
  Report Type: 
  Country: None (occurrence: None)
  Receive Date: 20081017
  Receipt Date: 20081006
  Transmission Date: 20090506
  Serious: Yes (Hospitalization, Other)
  Sender: FDA-Public Use
  Company Number: 2008AP002708

PATIENT
  Sex: Male

DRUGS (2)
  1. APO-AMIODARONE (AMIODARONE HYDROCHLORIDE) [Suspect]
     Indication: ATRIAL FIBRILLATION
     Dates: start: 20071201, end: 20080101
  2. APO-AMIODARONE (AMIODARONE HYDROCHLORIDE) [Suspect]
     Indication: ATRIAL FIBRILLATION
     Dates: start: 20080101

REACTIONS (5)
  - ATRIAL FIBRILLATION [None]
  - DYSPNOEA [None]
  - FOOD INTERACTION [None]
  - HYPERSENSITIVITY [None]
  - PULMONARY OEDEMA [None]
